FAERS Safety Report 8541764-5 (Version None)
Quarter: 2012Q3

REPORT INFORMATION
  Report Type: 
  Country: None (occurrence: None)
  Receive Date: 20120726
  Receipt Date: 20110825
  Transmission Date: 20120928
  Serious: No
  Sender: FDA-Public Use
  Company Number: US-ASTRAZENECA-2011SE51122

PATIENT
  Age: 34 Year
  Sex: Female
  Weight: 175 kg

DRUGS (8)
  1. CARISOPRODOL [Concomitant]
     Indication: MUSCLE SPASMS
  2. SEROQUEL XR [Suspect]
     Indication: ANXIETY
     Route: 048
     Dates: start: 20090101
  3. CLODIPINE [Concomitant]
     Indication: ANXIETY
  4. GABAPENTIN [Suspect]
     Indication: NEURALGIA
     Route: 048
  5. GABAPENTIN [Suspect]
     Indication: BACK PAIN
     Route: 048
  6. VIBRANT [Concomitant]
     Indication: ATTENTION DEFICIT/HYPERACTIVITY DISORDER
  7. GABAPENTIN [Suspect]
     Indication: MUSCLE SPASMS
     Route: 048
  8. CARISOPRODOL [Concomitant]
     Indication: BACK PAIN

REACTIONS (5)
  - OFF LABEL USE [None]
  - MUSCLE SPASMS [None]
  - ACCIDENT AT WORK [None]
  - BACK PAIN [None]
  - SOMNOLENCE [None]
